FAERS Safety Report 7082029-0 (Version None)
Quarter: 2010Q4

REPORT INFORMATION
  Report Type: 
  Country: None (occurrence: None)
  Receive Date: 20101103
  Receipt Date: 20101028
  Transmission Date: 20110411
  Serious: Yes (Other)
  Sender: FDA-Public Use
  Company Number: IT-ABBOTT-10P-083-0682169-00

PATIENT
  Age: 12 Year
  Sex: Female

DRUGS (1)
  1. DEPAKIN CHRONO TABLETS [Suspect]
     Indication: EPILEPSY
     Dosage: UNKNOWN;DAILY
     Route: 048

REACTIONS (5)
  - EPILEPSY [None]
  - HEADACHE [None]
  - PRODUCT QUALITY ISSUE [None]
  - SOMNOLENCE [None]
  - WRONG TECHNIQUE IN DRUG USAGE PROCESS [None]
